FAERS Safety Report 11457840 (Version 3)
Quarter: 2015Q4

REPORT INFORMATION
  Report Type: Spontaneous
  Country: US (occurrence: CN)
  Receive Date: 20150904
  Receipt Date: 20151126
  Transmission Date: 20160304
  Serious: Yes (Hospitalization)
  Sender: FDA-Public Use
  Company Number: US-009507513-1509CHN001196

PATIENT
  Age: 75 Year
  Sex: Male

DRUGS (1)
  1. KEYTRUDA [Suspect]
     Active Substance: PEMBROLIZUMAB
     Indication: MALIGNANT NEOPLASM OF AMPULLA OF VATER
     Dosage: UNK, EVERY 3 WEEKS
     Route: 042
     Dates: start: 20150209, end: 20150920

REACTIONS (5)
  - Malaise [Recovering/Resolving]
  - Asthenia [Unknown]
  - Product use issue [Unknown]
  - Pleural effusion [Not Recovered/Not Resolved]
  - Lung infection [Recovering/Resolving]

NARRATIVE: CASE EVENT DATE: 2015
